FAERS Safety Report 8026532-5 (Version None)
Quarter: 2012Q1

REPORT INFORMATION
  Report Type: 
  Country: None (occurrence: None)
  Receive Date: 20120106
  Receipt Date: 20111228
  Transmission Date: 20120608
  Serious: Yes (Hospitalization)
  Sender: FDA-Public Use
  Company Number: JP-BRISTOL-MYERS SQUIBB COMPANY-16329138

PATIENT
  Age: 45 Year
  Sex: Male

DRUGS (5)
  1. ZYPREXA [Concomitant]
  2. ALPRAZOLAM [Concomitant]
  3. TEGRETOL [Concomitant]
  4. TASMOLIN [Concomitant]
  5. ABILIFY [Suspect]
     Indication: AUTISM
     Route: 048

REACTIONS (2)
  - WEIGHT DECREASED [None]
  - SUPERIOR MESENTERIC ARTERY SYNDROME [None]
